FAERS Safety Report 7728942-X (Version None)
Quarter: 2011Q3

REPORT INFORMATION
  Report Type: 
  Country: None (occurrence: None)
  Receive Date: 20110906
  Receipt Date: 20110826
  Transmission Date: 20111222
  Serious: Yes (Hospitalization)
  Sender: FDA-Public Use
  Company Number: US-US-EMD SERONO, INC.-7027539

PATIENT
  Sex: Female

DRUGS (7)
  1. ATENOLOL [Concomitant]
     Indication: PALPITATIONS
  2. REBIF [Suspect]
     Route: 058
  3. REBIF [Suspect]
     Indication: MULTIPLE SCLEROSIS
     Route: 058
     Dates: start: 20060705, end: 20101110
  4. PREDNISONE [Suspect]
  5. REBIF [Suspect]
     Route: 058
     Dates: start: 20101122
  6. ATENOLOL [Concomitant]
     Indication: HEART RATE IRREGULAR
     Dates: start: 19970101
  7. VISTARIL [Concomitant]
     Indication: PREMEDICATION

REACTIONS (14)
  - APPENDICITIS PERFORATED [None]
  - BACK INJURY [None]
  - FALL [None]
  - POSTOPERATIVE WOUND INFECTION [None]
  - DIARRHOEA [None]
  - TRANSFUSION [None]
  - INFLUENZA LIKE ILLNESS [None]
  - INJECTION SITE REACTION [None]
  - VIRAL INFECTION [None]
  - MALAISE [None]
  - THYROID FUNCTION TEST ABNORMAL [None]
  - SCAR [None]
  - WEIGHT DECREASED [None]
  - PAIN [None]
